FAERS Safety Report 10037112 (Version 1)
Quarter: 2014Q1

REPORT INFORMATION
  Report Type: Spontaneous
  Country: US (occurrence: None)
  Receive Date: 20140324
  Receipt Date: 20140324
  Transmission Date: 20141002
  Serious: Yes (Hospitalization)
  Sender: FDA-Public Use
  Company Number: SYM-2014-18832

PATIENT
  Age: 15 Month
  Sex: Male

DRUGS (1)
  1. WELLBUTRIN [Suspect]
     Indication: ACCIDENTAL EXPOSURE TO PRODUCT BY CHILD
     Route: 048
     Dates: start: 20130824, end: 20130824

REACTIONS (1)
  - Accidental exposure to product by child [None]
